FAERS Safety Report 9040253 (Version 1)
Quarter: 2013Q1

REPORT INFORMATION
  Report Type: Report from Study
  Country: US (occurrence: US)
  Receive Date: 20130129
  Receipt Date: 20130129
  Transmission Date: 20140127
  Serious: No
  Sender: FDA-Public Use
  Company Number: US-ABBOTT-12P-163-0895378-00

PATIENT
  Sex: Female
  Weight: 72.64 kg

DRUGS (7)
  1. HUMIRA 40 MG/0.8 ML PEN [Suspect]
     Indication: ANKYLOSING SPONDYLITIS
     Dates: start: 2009
  2. ESTROPIPATE [Concomitant]
     Indication: OESTROGEN REPLACEMENT THERAPY
  3. CO ENZYME Q10 [Concomitant]
     Indication: PRODUCT USED FOR UNKNOWN INDICATION
  4. INDOMETHACIN [Concomitant]
     Indication: PRODUCT USED FOR UNKNOWN INDICATION
  5. SIMVASTATIN [Concomitant]
     Indication: BLOOD CHOLESTEROL INCREASED
  6. CALTRATE [Concomitant]
     Indication: PRODUCT USED FOR UNKNOWN INDICATION
  7. MIRALAX [Concomitant]
     Indication: PRODUCT USED FOR UNKNOWN INDICATION

REACTIONS (1)
  - Lymphadenopathy [Not Recovered/Not Resolved]
